FAERS Safety Report 18639946 (Version 1)
Quarter: 2020Q4

REPORT INFORMATION
  Report Type: Spontaneous
  Country: US (occurrence: US)
  Receive Date: 20201220
  Receipt Date: 20201220
  Transmission Date: 20210114
  Serious: No
  Sender: FDA-Public Use
  Company Number: US-PACIRA-202000027

PATIENT
  Age: 47 Year
  Sex: Male

DRUGS (2)
  1. BUPIVACAINE HYDROCHLORIDE. [Suspect]
     Active Substance: BUPIVACAINE HYDROCHLORIDE
     Indication: NERVE BLOCK
     Dosage: 15ML OF 0.5% MARCAINE ADMIXED WITH 10ML EXPAREL, USED 20 CC TOTAL OF BLOCK
     Route: 065
     Dates: start: 20191209, end: 20191209
  2. EXPAREL [Suspect]
     Active Substance: BUPIVACAINE
     Indication: NERVE BLOCK
     Dosage: 10 ML VIAL WITH 15ML OF 0.5% MARCAINE, USED 20 CC TOTAL OF BLOCK
     Route: 065
     Dates: start: 20191209, end: 20191209

REACTIONS (2)
  - Therapeutic product effect prolonged [Not Recovered/Not Resolved]
  - Asthenia [Not Recovered/Not Resolved]
